FAERS Safety Report 22631594 (Version 3)
Quarter: 2024Q2

REPORT INFORMATION
  Report Type: Report from Study
  Country: BD (occurrence: BD)
  Receive Date: 20230623
  Receipt Date: 20240423
  Transmission Date: 20240715
  Serious: Yes (Death, Hospitalization)
  Sender: FDA-Public Use
  Company Number: BD-002147023-NVSC2023BD128619

PATIENT
  Age: 61 Year
  Sex: Male
  Weight: 64 kg

DRUGS (1)
  1. ENTRESTO [Suspect]
     Active Substance: SACUBITRIL\VALSARTAN
     Indication: Cardiac failure chronic
     Dosage: UNK
     Route: 048

REACTIONS (3)
  - Lung neoplasm malignant [Fatal]
  - Chest pain [Unknown]
  - Cough [Unknown]
